FAERS Safety Report 17128598 (Version 2)
Quarter: 2020Q1

REPORT INFORMATION
  Report Type: Report from Study
  Country: US (occurrence: US)
  Receive Date: 20191209
  Receipt Date: 20200217
  Transmission Date: 20200409
  Serious: Yes (Other)
  Sender: FDA-Public Use
  Company Number: NVSC2019US061624

PATIENT
  Sex: Female

DRUGS (1)
  1. COSENTYX [Suspect]
     Active Substance: SECUKINUMAB
     Indication: PSORIASIS
     Dosage: 300 MG, QMO
     Route: 058

REACTIONS (4)
  - Infection [Unknown]
  - Respiratory tract infection [Unknown]
  - Psoriasis [Unknown]
  - Chronic obstructive pulmonary disease [Unknown]
